FAERS Safety Report 20665067 (Version 1)
Quarter: 2022Q2

REPORT INFORMATION
  Report Type: Spontaneous
  Country: GB (occurrence: None)
  Receive Date: 20220401
  Receipt Date: 20220401
  Transmission Date: 20220720
  Serious: Yes (Other)
  Sender: FDA-Public Use
  Company Number: GB-Fresenius Kabi-FK202203854

PATIENT
  Age: 26 Year
  Sex: Male

DRUGS (4)
  1. OXALIPLATIN [Suspect]
     Active Substance: OXALIPLATIN
     Indication: Adenocarcinoma of colon
     Dosage: (FOLFORINOX) REGIMEN WITH DOSE MODIFICATIONS
  2. FLUOROURACIL [Suspect]
     Active Substance: FLUOROURACIL
     Indication: Adenocarcinoma of colon
     Dosage: (FOLFORINOX) REGIMEN WITH DOSE MODIFICATIONS
  3. LEUCOVORIN [Suspect]
     Active Substance: LEUCOVORIN
     Indication: Adenocarcinoma of colon
     Dosage: (FOLFORINOX) REGIMEN WITH DOSE MODIFICATIONS
  4. IRINOTECAN [Suspect]
     Active Substance: IRINOTECAN
     Indication: Adenocarcinoma of colon
     Dosage: (FOLFORINOX) REGIMEN WITH DOSE MODIFICATIONS

REACTIONS (1)
  - Blindness transient [Recovered/Resolved]
